FAERS Safety Report 17341191 (Version 1)
Quarter: 2020Q1

REPORT INFORMATION
  Report Type: Spontaneous
  Country: US (occurrence: US)
  Receive Date: 20200129
  Receipt Date: 20200129
  Transmission Date: 20200409
  Serious: No
  Sender: FDA-Public Use
  Company Number: US-SMITH AND NEPHEW, INC-2019SMT00002

PATIENT
  Age: 47 Year
  Sex: Male
  Weight: 147.39 kg

DRUGS (3)
  1. LEXAPRO [Concomitant]
     Active Substance: ESCITALOPRAM OXALATE
  2. REGRANEX [Suspect]
     Active Substance: BECAPLERMIN
     Indication: WOUND
     Dosage: A THIN LAYER
     Route: 061
     Dates: start: 20181228, end: 20181228
  3. INSULIN [Concomitant]
     Active Substance: INSULIN NOS

REACTIONS (3)
  - Blood blister [Recovering/Resolving]
  - Incorrect product administration duration [Recovered/Resolved]
  - Rash [Recovering/Resolving]

NARRATIVE: CASE EVENT DATE: 20181228
